FAERS Safety Report 6925062-9 (Version None)
Quarter: 2010Q3

REPORT INFORMATION
  Report Type: 
  Country: None (occurrence: None)
  Receive Date: 20100810
  Receipt Date: 20100727
  Transmission Date: 20110219
  Serious: Yes (Other)
  Sender: FDA-Public Use
  Company Number: 2010SP001995

PATIENT
  Age: 11 Year
  Sex: Male
  Weight: 36.7 kg

DRUGS (2)
  1. ALVESCO [Suspect]
     Indication: ASTHMA
     Dosage: 160 UG;BID;INHALATION
     Dates: start: 20100503, end: 20100630
  2. PREVACID [Concomitant]

REACTIONS (6)
  - ARTHRALGIA [None]
  - GAIT DISTURBANCE [None]
  - JOINT INSTABILITY [None]
  - JOINT STIFFNESS [None]
  - JOINT SWELLING [None]
  - MUSCULOSKELETAL DISCOMFORT [None]
